FAERS Safety Report 19062333 (Version 1)
Quarter: 2021Q1

REPORT INFORMATION
  Report Type: Report from Study
  Country: JP (occurrence: JP)
  Receive Date: 20210326
  Receipt Date: 20210326
  Transmission Date: 20210420
  Serious: Yes (Hospitalization)
  Sender: FDA-Public Use
  Company Number: JP-MYLANLABS-2021M1017480

PATIENT
  Age: 11 Year
  Sex: Female

DRUGS (4)
  1. PREDNISOLONE. [Suspect]
     Active Substance: PREDNISOLONE
     Indication: PANCYTOPENIA
     Dosage: 30 MILLIGRAM, QD, 1.2 MG/KG/DAY
     Route: 065
  2. CICLOSPORIN [Suspect]
     Active Substance: CYCLOSPORINE
     Indication: NEUTROPENIA
     Dosage: 60 MILLIGRAM, 2.4 MG/KG/DAY
     Route: 048
  3. CLARITHROMYCIN. [Concomitant]
     Active Substance: CLARITHROMYCIN
     Indication: PROPHYLAXIS
     Route: 065
  4. FLUCONAZOLE. [Concomitant]
     Active Substance: FLUCONAZOLE
     Indication: PROPHYLAXIS
     Route: 065

REACTIONS (4)
  - Laryngitis viral [Recovering/Resolving]
  - Laryngeal oedema [Recovering/Resolving]
  - Cytomegalovirus infection [Recovering/Resolving]
  - Off label use [Unknown]
